FAERS Safety Report 20016675 (Version 1)
Quarter: 2021Q4

REPORT INFORMATION
  Report Type: Spontaneous
  Country: US (occurrence: None)
  Receive Date: 20211104
  Receipt Date: 20211104
  Transmission Date: 20220303
  Serious: Yes (Hospitalization)
  Sender: FDA-Public Use
  Company Number: None

PATIENT
  Age: 21 Year
  Sex: Male
  Weight: 130.5 kg

DRUGS (2)
  1. INGREZZA [Suspect]
     Active Substance: VALBENAZINE
     Indication: Tourette^s disorder
     Dosage: FREQUENCY : DAILY;?
     Route: 048
     Dates: start: 20211004, end: 20211006
  2. INGREZZA [Concomitant]
     Active Substance: VALBENAZINE
     Dates: start: 20211004, end: 20211006

REACTIONS (1)
  - Hospitalisation [None]

NARRATIVE: CASE EVENT DATE: 20211006
